FAERS Safety Report 4589796-6 (Version None)
Quarter: 2005Q1

REPORT INFORMATION
  Report Type: 
  Country: None (occurrence: None)
  Receive Date: 20050223
  Receipt Date: 20041206
  Transmission Date: 20050727
  Serious: Yes (Hospitalization)
  Sender: FDA-Public Use
  Company Number: JP-GLAXOSMITHKLINE-B0359330A

PATIENT
  Age: 75 Year
  Sex: Female
  Weight: 42 kg

DRUGS (6)
  1. VALTREX [Suspect]
     Indication: HERPES ZOSTER
     Dosage: 1000MG THREE TIMES PER DAY
     Route: 048
     Dates: start: 20041129, end: 20041203
  2. TEGRETOL [Suspect]
     Indication: HERPES ZOSTER
     Dosage: 100MG PER DAY
     Route: 048
     Dates: start: 20041129, end: 20041202
  3. LOXONIN [Concomitant]
     Route: 048
  4. BUFFERIN [Concomitant]
     Dosage: 81MG PER DAY
     Route: 048
     Dates: start: 20040901
  5. LOCHOL [Concomitant]
     Dosage: 20MG PER DAY
     Route: 048
     Dates: start: 20040901
  6. CYANOCOBALAMIN [Concomitant]
     Dosage: 1.5MG PER DAY
     Route: 048
     Dates: start: 20040901

REACTIONS (11)
  - ALANINE AMINOTRANSFERASE INCREASED [None]
  - ASPARTATE AMINOTRANSFERASE INCREASED [None]
  - BLOOD CREATININE INCREASED [None]
  - BLOOD UREA INCREASED [None]
  - DECREASED APPETITE [None]
  - EATING DISORDER [None]
  - GAMMA-GLUTAMYLTRANSFERASE INCREASED [None]
  - HEPATIC FUNCTION ABNORMAL [None]
  - MALAISE [None]
  - NAUSEA [None]
  - RENAL FAILURE ACUTE [None]
